FAERS Safety Report 5090638-3 (Version None)
Quarter: 2006Q3

REPORT INFORMATION
  Report Type: 
  Country: None (occurrence: None)
  Receive Date: 20060823
  Receipt Date: 20060818
  Transmission Date: 20061208
  Serious: Yes (Death)
  Sender: FDA-Public Use
  Company Number: AE 060801.ACA

PATIENT
  Age: 19 Year
  Sex: Male
  Weight: 68 kg

DRUGS (7)
  1. AMINOCAPROIC ACID [Suspect]
     Indication: HAEMORRHAGE PROPHYLAXIS
     Dosage: 25 G TOTAL DOSE
  2. ETOMIDATE OR THIOPENTAL [Concomitant]
  3. FENTANYL [Concomitant]
  4. LOW DOSE ISOFLURANE [Concomitant]
  5. MIDAZOLAM HCL [Concomitant]
  6. HEPARIN [Concomitant]
  7. PROTAMIN SULFATE [Concomitant]

REACTIONS (3)
  - PULMONARY ARTERIAL PRESSURE INCREASED [None]
  - PULMONARY THROMBOSIS [None]
  - VENTRICULAR HYPOKINESIA [None]
